FAERS Safety Report 8866254 (Version 3)
Quarter: 2012Q4

REPORT INFORMATION
  Report Type: 
  Country: FR (occurrence: FR)
  Receive Date: 20121025
  Receipt Date: 20121217
  Transmission Date: 20130627
  Serious: Yes (Death, Hospitalization)
  Sender: FDA-Public Use
  Company Number: FR-B.I. PHARMACEUTICALS,INC./RIDGEFIELD-2012-FF-01528FF

PATIENT
  Age: 91 Year
  Sex: Male
  Weight: 50 kg

DRUGS (9)
  1. PRADAXA [Suspect]
     Indication: ATRIAL FIBRILLATION
     Dosage: 220 mg
     Route: 048
     Dates: start: 201206, end: 20120908
  2. ONBREZ [Concomitant]
     Route: 055
  3. CARDENSIEL [Concomitant]
     Route: 048
  4. HEMIGOXINE NATIVELLE [Concomitant]
     Route: 048
  5. LASILIX [Concomitant]
     Route: 048
  6. MECIR [Concomitant]
     Route: 048
  7. DIFFU K [Concomitant]
     Route: 048
  8. SURBRONC [Concomitant]
     Route: 048
  9. CETORNAN [Concomitant]
     Route: 048

REACTIONS (1)
  - Pericardial effusion [Fatal]
